FAERS Safety Report 13641942 (Version 2)
Quarter: 2017Q4

REPORT INFORMATION
  Report Type: Report from Study
  Country: AR (occurrence: AR)
  Receive Date: 20170612
  Receipt Date: 20171005
  Transmission Date: 20180320
  Serious: Yes (Other)
  Sender: FDA-Public Use
  Company Number: AR-BRISTOL-MYERS SQUIBB COMPANY-BMS-2017-050480

PATIENT
  Age: 45 Year
  Sex: Female

DRUGS (2)
  1. ENTECAVIR. [Suspect]
     Active Substance: ENTECAVIR
     Indication: PRODUCT USED FOR UNKNOWN INDICATION
     Dosage: UNK, 3 TIMES/WK
     Route: 065
     Dates: start: 20170516
  2. ENTECAVIR. [Suspect]
     Active Substance: ENTECAVIR
     Indication: HEPATITIS B
     Dosage: UNK
     Route: 065

REACTIONS (2)
  - Renal transplant [Unknown]
  - Off label use [Unknown]

NARRATIVE: CASE EVENT DATE: 20170516
